FAERS Safety Report 15989277 (Version 1)
Quarter: 2019Q1

REPORT INFORMATION
  Report Type: Spontaneous
  Country: US (occurrence: US)
  Receive Date: 20190221
  Receipt Date: 20190221
  Transmission Date: 20190418
  Serious: No
  Sender: FDA-Public Use
  Company Number: US-009507513-1901USA008788

PATIENT
  Sex: Male

DRUGS (1)
  1. ASMANEX [Suspect]
     Active Substance: MOMETASONE FUROATE
     Dosage: 220MCG 120DOSE, 2 PUFFS TAKEN TWICE DAILY
     Route: 055

REACTIONS (3)
  - No adverse event [Unknown]
  - Product administration error [Unknown]
  - Product quality issue [Unknown]
